FAERS Safety Report 6132949-6 (Version None)
Quarter: 2009Q1

REPORT INFORMATION
  Report Type: 
  Country: None (occurrence: None)
  Receive Date: 20090326
  Receipt Date: 20090319
  Transmission Date: 20090719
  Serious: Yes (Other)
  Sender: FDA-Public Use
  Company Number: PHHY2009JP09062

PATIENT
  Sex: Female

DRUGS (7)
  1. ZOMETA [Suspect]
     Indication: METASTASES TO BONE
     Dosage: 4 MG, UNK
     Route: 042
     Dates: start: 20080714
  2. FEMARA [Concomitant]
     Dosage: 2.5 MG
     Route: 048
  3. NOVORAPID [Concomitant]
     Indication: DIABETES MELLITUS
     Dosage: 18 UNIT
     Route: 042
  4. BLOPRESS [Concomitant]
     Dosage: 8 MG
     Route: 048
  5. PARIET [Concomitant]
     Dosage: 10 MG
     Route: 048
  6. HYPEN [Concomitant]
     Dosage: 400 MG
     Route: 048
  7. MS CONTIN [Concomitant]
     Dosage: 60 MG
     Route: 048

REACTIONS (5)
  - BONE DISORDER [None]
  - DENTAL CARE [None]
  - MASS [None]
  - OSTEOMYELITIS [None]
  - PAIN IN JAW [None]
